FAERS Safety Report 10365764 (Version 2)
Quarter: 2014Q3

REPORT INFORMATION
  Report Type: Report from Study
  Country: US (occurrence: US)
  Receive Date: 20140806
  Receipt Date: 20140916
  Transmission Date: 20150326
  Serious: Yes (Hospitalization, Other)
  Sender: FDA-Public Use
  Company Number: US-SA-2014SA102412

PATIENT
  Age: 62 Year
  Sex: Female

DRUGS (1)
  1. LANTUS [Suspect]
     Active Substance: INSULIN GLARGINE
     Indication: TYPE 2 DIABETES MELLITUS
     Dosage: DOSE:40 UNIT(S)
     Route: 065
     Dates: start: 2008, end: 201408

REACTIONS (6)
  - Liver disorder [Not Recovered/Not Resolved]
  - Spleen disorder [Not Recovered/Not Resolved]
  - Chemical poisoning [Recovered/Resolved]
  - Renal disorder [Not Recovered/Not Resolved]
  - Blood glucose abnormal [Recovered/Resolved]
  - Inappropriate schedule of drug administration [Unknown]

NARRATIVE: CASE EVENT DATE: 201406
